FAERS Safety Report 20762768 (Version 1)
Quarter: 2022Q2

REPORT INFORMATION
  Report Type: Spontaneous
  Country: US (occurrence: None)
  Receive Date: 20220427
  Receipt Date: 20220427
  Transmission Date: 20220721
  Serious: Yes (Death, Life-Threatening, Hospitalization)
  Sender: FDA-Public Use
  Company Number: None

PATIENT
  Age: 81 Year
  Sex: Female

DRUGS (3)
  1. PEMBROLIZUMAB [Suspect]
     Active Substance: PEMBROLIZUMAB
     Indication: Lung cancer metastatic
     Route: 042
     Dates: start: 20210326, end: 20220222
  2. CARBOPLATIN [Concomitant]
     Active Substance: CARBOPLATIN
     Dates: start: 20210326, end: 20220222
  3. pemetresxed [Concomitant]
     Dates: start: 20210326, end: 20210528

REACTIONS (3)
  - Pancreatitis acute [None]
  - Acute kidney injury [None]
  - Drug-induced liver injury [None]

NARRATIVE: CASE EVENT DATE: 20220423
